FAERS Safety Report 23473156 (Version 1)
Quarter: 2024Q1

REPORT INFORMATION
  Report Type: Spontaneous
  Country: US (occurrence: US)
  Receive Date: 20240203
  Receipt Date: 20240203
  Transmission Date: 20240409
  Serious: Yes (Other)
  Sender: FDA-Public Use
  Company Number: US-DRL-USA-LIT/USA/24/0001719

PATIENT
  Age: 27 Year
  Sex: Female

DRUGS (6)
  1. MYCOPHENOLIC ACID [Suspect]
     Active Substance: MYCOPHENOLIC ACID
     Indication: Myocarditis
  2. TACROLIMUS [Suspect]
     Active Substance: TACROLIMUS
     Indication: Myocarditis
  3. RITUXIMAB [Suspect]
     Active Substance: RITUXIMAB
     Indication: Myocarditis
  4. METHYLPREDNISOLONE [Suspect]
     Active Substance: METHYLPREDNISOLONE
     Indication: Myocarditis
  5. IMMUNE GLOBULIN NOS [Suspect]
     Active Substance: IMMUNE GLOBULIN NOS
     Indication: Myocarditis
  6. PREDNISONE [Suspect]
     Active Substance: PREDNISONE
     Indication: Myocarditis

REACTIONS (3)
  - Drug ineffective [Unknown]
  - Disease progression [Unknown]
  - Exposure during pregnancy [Unknown]
